FAERS Safety Report 5792192-7 (Version None)
Quarter: 2008Q2

REPORT INFORMATION
  Report Type: 
  Country: None (occurrence: None)
  Receive Date: 20080626
  Receipt Date: 20080602
  Transmission Date: 20081010
  Serious: No
  Sender: FDA-Public Use
  Company Number: US-BOEHRINGER INGELHEIM GMBH, GERMANY-2008-BP-08580BP

PATIENT
  Age: 59 Year
  Sex: Female
  Weight: 63 kg

DRUGS (6)
  1. AGGRENOX [Suspect]
     Indication: TRANSIENT ISCHAEMIC ATTACK
     Dosage: 50MG/400MG
     Dates: start: 20080101, end: 20080101
  2. AGGRENOX [Suspect]
     Indication: CAROTID ARTERY OCCLUSION
  3. LIPITOR [Concomitant]
  4. CALTRATE [Concomitant]
  5. VITAMIN B [Concomitant]
  6. SALT SUBSTITUTE [Concomitant]

REACTIONS (4)
  - ABDOMINAL PAIN UPPER [None]
  - DIARRHOEA [None]
  - HEADACHE [None]
  - VOMITING [None]
